FAERS Safety Report 7179759-9 (Version None)
Quarter: 2010Q4

REPORT INFORMATION
  Report Type: 
  Country: None (occurrence: None)
  Receive Date: 20101221
  Receipt Date: 20101207
  Transmission Date: 20110411
  Serious: Yes (Other)
  Sender: FDA-Public Use
  Company Number: US-ROCHE-748779

PATIENT
  Sex: Female

DRUGS (3)
  1. BEVACIZUMAB [Suspect]
     Dosage: ON DAY 1 EVERY 14 DAYS
     Route: 042
  2. GEMCITABINE [Suspect]
     Dosage: ON DAY 1 EVERY 14 DAYS
     Route: 042
  3. TAXANE NOS [Concomitant]
     Dosage: AS NEOADJUVANT AND/OR ADJUVANT THERAPY

REACTIONS (8)
  - ANAEMIA [None]
  - HAEMOLYTIC URAEMIC SYNDROME [None]
  - HYPERTENSION [None]
  - LEUKOPENIA [None]
  - NEUTROPENIA [None]
  - PULMONARY EMBOLISM [None]
  - RENAL FAILURE ACUTE [None]
  - THROMBOCYTOPENIA [None]
